FAERS Safety Report 25662036 (Version 1)
Quarter: 2025Q3

REPORT INFORMATION
  Report Type: Spontaneous
  Country: CN (occurrence: CN)
  Receive Date: 20250810
  Receipt Date: 20250810
  Transmission Date: 20251021
  Serious: Yes (Other)
  Sender: ALEXION PHARMACEUTICALS
  Company Number: CN-ASTRAZENECA-202411CHN007648CN

PATIENT
  Age: 48 Year
  Sex: Female
  Weight: 80 kg

DRUGS (1)
  1. FORMOTEROL FUMARATE\GLYCOPYRROLATE [Suspect]
     Active Substance: FORMOTEROL FUMARATE\GLYCOPYRROLATE
     Indication: Chronic obstructive pulmonary disease
     Dosage: 12.200 MICROGRAM, QD
     Dates: start: 20241106, end: 20241106

REACTIONS (2)
  - Hypoaesthesia oral [Recovered/Resolved]
  - Tongue paralysis [Recovered/Resolved]

NARRATIVE: CASE EVENT DATE: 20241106
